FAERS Safety Report 9416241 (Version 1)
Quarter: 2013Q3

REPORT INFORMATION
  Report Type: Spontaneous
  Country: KR (occurrence: None)
  Receive Date: 20130718
  Receipt Date: 20130718
  Transmission Date: 20140515
  Serious: Yes (Other)
  Sender: FDA-Public Use
  Company Number: SYM-2013-06079

PATIENT
  Sex: Female

DRUGS (3)
  1. FLUOROURACIL [Suspect]
     Indication: OVARIAN EPITHELIAL CANCER RECURRENT
     Route: 040
  2. OXALIPLATIN [Suspect]
     Indication: OVARIAN EPITHELIAL CANCER RECURRENT
  3. LEUCOVORIN [Suspect]
     Indication: OVARIAN EPITHELIAL CANCER RECURRENT

REACTIONS (2)
  - Neutropenia [None]
  - Haematotoxicity [None]
